FAERS Safety Report 6057271-8 (Version None)
Quarter: 2009Q1

REPORT INFORMATION
  Report Type: 
  Country: None (occurrence: None)
  Receive Date: 20090129
  Receipt Date: 20080718
  Transmission Date: 20090719
  Serious: No
  Sender: FDA-Public Use
  Company Number: A0738439A

PATIENT
  Age: 58 Year
  Sex: Female

DRUGS (5)
  1. WELLBUTRIN [Suspect]
     Indication: DEPRESSION
     Route: 048
     Dates: start: 20040501, end: 20040501
  2. NEXIUM [Concomitant]
  3. ATENOLOL [Concomitant]
  4. ULTRAM [Concomitant]
  5. CLONAZEPAM [Concomitant]

REACTIONS (1)
  - URTICARIA [None]
